FAERS Safety Report 12230477 (Version 1)
Quarter: 2016Q2

REPORT INFORMATION
  Report Type: Spontaneous
  Country: BR (occurrence: BR)
  Receive Date: 20160401
  Receipt Date: 20160401
  Transmission Date: 20160815
  Serious: Yes (Hospitalization)
  Sender: FDA-Public Use
  Company Number: BR-PFIZER INC-2015464174

PATIENT
  Age: 77 Year
  Sex: Male
  Weight: 62 kg

DRUGS (10)
  1. METFORMIN [Concomitant]
     Active Substance: METFORMIN HYDROCHLORIDE
  2. DIAMICRON [Concomitant]
     Active Substance: GLICLAZIDE
  3. ATENOLOL. [Concomitant]
     Active Substance: ATENOLOL
  4. LIPITOR [Concomitant]
     Active Substance: ATORVASTATIN CALCIUM
  5. SUTENT [Suspect]
     Active Substance: SUNITINIB MALATE
     Indication: METASTATIC RENAL CELL CARCINOMA
     Dosage: 50 MG, CYCLE 2X1
     Route: 048
     Dates: start: 20151216, end: 201602
  6. PANTOPRAZOLE [Concomitant]
     Active Substance: PANTOPRAZOLE SODIUM
  7. ALLOPURINOL. [Concomitant]
     Active Substance: ALLOPURINOL
  8. HIGROTON [Concomitant]
     Active Substance: CHLORTHALIDONE
  9. SOMALGIN [Concomitant]
     Active Substance: ASPIRIN\DIHYDROXYALUMINUM AMINOACETATE ANHYDROUS\MAGNESIUM CARBONATE
  10. CLOPIN [Concomitant]
     Active Substance: CLOPIDOGREL BISULFATE

REACTIONS (13)
  - Somnolence [Recovering/Resolving]
  - Yellow skin [Recovering/Resolving]
  - Asthenia [Unknown]
  - Rash pruritic [Recovered/Resolved]
  - Dehydration [Unknown]
  - Dyspnoea [Recovering/Resolving]
  - Fatigue [Not Recovered/Not Resolved]
  - Asthenia [Recovering/Resolving]
  - Anaemia [Unknown]
  - Depression [Recovering/Resolving]
  - Speech disorder [Recovering/Resolving]
  - Eye inflammation [Recovered/Resolved]
  - Blood calcium increased [Unknown]

NARRATIVE: CASE EVENT DATE: 20151221
